FAERS Safety Report 15467151 (Version 2)
Quarter: 2018Q4

REPORT INFORMATION
  Report Type: Spontaneous
  Country: DE (occurrence: DE)
  Receive Date: 20181005
  Receipt Date: 20181016
  Transmission Date: 20190204
  Serious: Yes (Hospitalization, Other)
  Sender: FDA-Public Use
  Company Number: DE-TEVA-2018-DE-961152

PATIENT
  Age: 60 Year
  Sex: Male
  Weight: 101 kg

DRUGS (4)
  1. DICLOFENAC-RATIOPHARM 75 MG SL RETARDKAPSELN [Suspect]
     Active Substance: DICLOFENAC
     Indication: BACK PAIN
     Dosage: 75 MILLIGRAM DAILY; SL RETARDKAPSELN
     Route: 048
     Dates: start: 20180805, end: 20180807
  2. DICLOFENAC-RATIOPHARM 75 MG SL RETARDKAPSELN [Suspect]
     Active Substance: DICLOFENAC
     Dosage: 150 MILLIGRAM DAILY;
     Route: 048
     Dates: start: 20180730, end: 20180804
  3. DICLOFENAC-RATIOPHARM 75 MG SL RETARDKAPSELN [Suspect]
     Active Substance: DICLOFENAC
     Dosage: 75 MILLIGRAM DAILY;
     Route: 048
     Dates: start: 20180508, end: 20180807
  4. RAMIPRIL 5 MG [Concomitant]
     Active Substance: RAMIPRIL
     Indication: HYPERTENSION
     Dosage: 5 MILLIGRAM DAILY;
     Route: 048

REACTIONS (7)
  - Presyncope [Recovered/Resolved]
  - Hypoaesthesia oral [Recovered/Resolved]
  - Hyperhidrosis [Recovered/Resolved]
  - Angioedema [Recovered/Resolved]
  - Pyrexia [Recovered/Resolved]
  - Dizziness [Recovered/Resolved]
  - Nausea [Recovered/Resolved]

NARRATIVE: CASE EVENT DATE: 20180804
